FAERS Safety Report 10620186 (Version 2)
Quarter: 2014Q4

REPORT INFORMATION
  Report Type: Spontaneous
  Country: CH (occurrence: CH)
  Receive Date: 20141202
  Receipt Date: 20141217
  Transmission Date: 20150529
  Serious: Yes (Other)
  Sender: FDA-Public Use
  Company Number: CH-INCYTE CORPORATION-2014IN003569

PATIENT
  Sex: Female

DRUGS (6)
  1. EPREX [Concomitant]
     Active Substance: ERYTHROPOIETIN
     Route: 065
  2. ASPIRIN CARDIO [Concomitant]
     Active Substance: ASPIRIN
     Route: 065
  3. JAKAFI [Suspect]
     Active Substance: RUXOLITINIB
     Dosage: 10 MG, BID
     Route: 065
  4. JAKAFI [Suspect]
     Active Substance: RUXOLITINIB
     Indication: MYELOFIBROSIS
     Dosage: 15 MG, BID
     Route: 065
  5. EPO//ERYTHROPOIETIN [Concomitant]
     Route: 065
  6. EUTHYROX [Concomitant]
     Active Substance: LEVOTHYROXINE SODIUM
     Route: 065

REACTIONS (1)
  - Arthralgia [Not Recovered/Not Resolved]
